FAERS Safety Report 7483169-4 (Version None)
Quarter: 2011Q2

REPORT INFORMATION
  Report Type: 
  Country: None (occurrence: None)
  Receive Date: 20110516
  Receipt Date: 20101027
  Transmission Date: 20111010
  Serious: No
  Sender: FDA-Public Use
  Company Number: US-AMGEN-KDL431917

PATIENT
  Sex: Male

DRUGS (1)
  1. ENBREL [Suspect]
     Indication: PSORIATIC ARTHROPATHY
     Dosage: 50 MG, QWK
     Route: 058
     Dates: start: 20060501, end: 20101025

REACTIONS (6)
  - PSORIATIC ARTHROPATHY [None]
  - FATIGUE [None]
  - LOCALISED INFECTION [None]
  - INFLUENZA [None]
  - DIZZINESS [None]
  - NASOPHARYNGITIS [None]
